FAERS Safety Report 5198106-5 (Version None)
Quarter: 2006Q4

REPORT INFORMATION
  Report Type: 
  Country: None (occurrence: None)
  Receive Date: 20061228
  Receipt Date: 20061218
  Transmission Date: 20070319
  Serious: Yes (Hospitalization)
  Sender: FDA-Public Use
  Company Number: WAES 0612USA03304

PATIENT
  Age: 71 Year
  Sex: Female
  Weight: 83.9154 kg

DRUGS (3)
  1. EMEND [Suspect]
     Dosage: PO
     Route: 048
     Dates: start: 20060101
  2. CAP VORINOSTAT UNK [Suspect]
     Indication: ACUTE MYELOID LEUKAEMIA
     Dosage: 200 MG/TID/PO
     Route: 048
     Dates: start: 20061205, end: 20061212
  3. DECITABINE UNK [Suspect]
     Indication: ACUTE MYELOID LEUKAEMIA
     Dosage: 10 MG/M [2] /DAILY/IV
     Route: 042
     Dates: start: 20061130, end: 20061204

REACTIONS (3)
  - ANGIONEUROTIC OEDEMA [None]
  - DIARRHOEA [None]
  - HYPERSENSITIVITY [None]
